FAERS Safety Report 5360052-1 (Version None)
Quarter: 2007Q2

REPORT INFORMATION
  Report Type: 
  Country: None (occurrence: None)
  Receive Date: 20070618
  Receipt Date: 20060509
  Transmission Date: 20071010
  Serious: No
  Sender: FDA-Public Use
  Company Number: US-ASTRAZENECA-2006UW09162

PATIENT
  Age: 70 Year
  Sex: Female
  Weight: 64.4 kg

DRUGS (10)
  1. FASLODEX [Suspect]
     Indication: BREAST CANCER FEMALE
     Dosage: 4-5 DOSES THEN DISCONTINUED
     Route: 030
     Dates: start: 20040901
  2. COUMADIN [Concomitant]
  3. TOPROL-XL [Concomitant]
     Route: 048
  4. NEXIUM [Concomitant]
     Route: 048
  5. VITAMIN D [Concomitant]
  6. VITAMIN B6 [Concomitant]
  7. CALCIUM CHLORIDE [Concomitant]
  8. XELODA [Concomitant]
     Dates: start: 20041201
  9. TAXOL [Concomitant]
     Dates: start: 20041201
  10. NAVELBINE [Concomitant]
     Dates: start: 20041201

REACTIONS (3)
  - BALANCE DISORDER [None]
  - DYSARTHRIA [None]
  - MIGRAINE [None]
